FAERS Safety Report 9778431 (Version 1)
Quarter: 2013Q4

REPORT INFORMATION
  Report Type: Spontaneous
  Country: US (occurrence: None)
  Receive Date: 20131220
  Receipt Date: 20131220
  Transmission Date: 20140711
  Serious: Yes (Hospitalization)
  Sender: FDA-Public Use
  Company Number: None

PATIENT
  Age: 81 Year
  Sex: Female
  Weight: 83.46 kg

DRUGS (2)
  1. CIPROFLOXACIN [Suspect]
     Indication: URINARY TRACT INFECTION
     Dosage: 1 DAY ORAL
     Dates: start: 201208
  2. NYSTATIN [Suspect]
     Indication: INFECTION
     Dosage: CREAM SEV./DAY

REACTIONS (3)
  - Vomiting [None]
  - Rash erythematous [None]
  - Genital rash [None]
